FAERS Safety Report 8817018 (Version 1)
Quarter: 2012Q4

REPORT INFORMATION
  Report Type: Spontaneous
  Country: DE (occurrence: None)
  Receive Date: 20121002
  Receipt Date: 20121002
  Transmission Date: 20130627
  Serious: Yes (Other)
  Sender: FDA-Public Use
  Company Number: 2009EU003922

PATIENT
  Age: 74 Year
  Sex: Male

DRUGS (2)
  1. VESIKUR [Suspect]
     Indication: MICTURITION URGENCY
     Route: 048
     Dates: start: 20060907, end: 20081227
  2. INSULIN [Concomitant]

REACTIONS (1)
  - Phimosis [None]
